FAERS Safety Report 6274139-2 (Version None)
Quarter: 2009Q3

REPORT INFORMATION
  Report Type: 
  Country: None (occurrence: None)
  Receive Date: 20090720
  Receipt Date: 20090716
  Transmission Date: 20100115
  Serious: Yes (Life-Threatening, Other)
  Sender: FDA-Public Use
  Company Number: PHEH2009US07616

PATIENT
  Sex: Male

DRUGS (1)
  1. DIOVAN [Suspect]

REACTIONS (5)
  - COMA [None]
  - FEELING ABNORMAL [None]
  - HYPERHIDROSIS [None]
  - RENAL FAILURE [None]
  - VERTIGO [None]
